FAERS Safety Report 6914042-5 (Version None)
Quarter: 2010Q3

REPORT INFORMATION
  Report Type: 
  Country: None (occurrence: None)
  Receive Date: 20100809
  Receipt Date: 20100727
  Transmission Date: 20110219
  Serious: Yes (Hospitalization, Other)
  Sender: FDA-Public Use
  Company Number: PHHY2010BR50220

PATIENT
  Age: 83 Year
  Sex: Female

DRUGS (11)
  1. DIOVAN [Suspect]
     Indication: HYPERTENSION
     Dosage: 160 MG, 1 TABLET DAILY
  2. SYNTHROID [Concomitant]
     Dosage: 1 TABLET ON FASTING
  3. SIMVASTATIN [Concomitant]
     Dosage: 20 MG, 01 TABLET AFTER THE DINNER
  4. CALTRATE [Concomitant]
     Dosage: 600 MG, 1 TABLET DAILY
  5. OMEPRAZOLE [Concomitant]
     Dosage: 20 MG, 01 TABLET ON FASTING AND 01 TABLET AT NIGHT
  6. ALDACTONE [Concomitant]
     Dosage: 25 MG, 1 TABLET 1 TIME DAILY
  7. ALLOPURINOL [Concomitant]
     Dosage: 30 MG , 01 TABLET DAILY
  8. VITAMIN A [Concomitant]
     Dosage: 2 DROPS 01 TIME DAILY.
  9. COLECALCIFEROL [Concomitant]
     Dosage: 2 DROPS 01 TIME DAILY.
  10. BROMAZEPAM [Concomitant]
     Dosage: 3 MG, 1 TABLET 1 TIME DAILY
  11. METFORMIN HCL [Concomitant]
     Dosage: 500 MG, 02 TABLETS ON LUNCH AND 02 TABLETS AT DINNER

REACTIONS (13)
  - ANXIETY [None]
  - CHOLECYSTECTOMY [None]
  - CONDITION AGGRAVATED [None]
  - DIABETES MELLITUS [None]
  - GAIT DISTURBANCE [None]
  - INSOMNIA [None]
  - MALAISE [None]
  - NAUSEA [None]
  - OBESITY [None]
  - PAIN IN EXTREMITY [None]
  - THYROID DISORDER [None]
  - VOMITING [None]
  - WALKING AID USER [None]
